FAERS Safety Report 16703071 (Version 1)
Quarter: 2019Q3

REPORT INFORMATION
  Report Type: Spontaneous
  Country: CR (occurrence: CR)
  Receive Date: 20190814
  Receipt Date: 20190814
  Transmission Date: 20191004
  Serious: Yes (Hospitalization, Other)
  Sender: FDA-Public Use
  Company Number: CR-PFIZER INC-2019295962

PATIENT
  Age: 66 Year
  Sex: Male
  Weight: 104 kg

DRUGS (1)
  1. LIPITOR [Suspect]
     Active Substance: ATORVASTATIN CALCIUM
     Indication: BLOOD CHOLESTEROL ABNORMAL
     Dosage: 20 MG, 1X/DAY (AT NIGHT)
     Dates: start: 2013, end: 2019

REACTIONS (3)
  - Renal failure [Unknown]
  - Arrhythmia [Unknown]
  - Renal atrophy [Unknown]

NARRATIVE: CASE EVENT DATE: 2018
